FAERS Safety Report 8597716-2 (Version None)
Quarter: 2012Q3

REPORT INFORMATION
  Report Type: 
  Country: None (occurrence: None)
  Receive Date: 20120803
  Receipt Date: 20120720
  Transmission Date: 20120928
  Serious: Yes (Hospitalization)
  Sender: FDA-Public Use
  Company Number: CIO12012884

PATIENT
  Age: 64 Year
  Sex: Female

DRUGS (1)
  1. METAMUCIL-2 [Suspect]
     Dosage: 4 CAPSUL, 1 /DAY, ORAL
     Route: 048
     Dates: start: 20090501

REACTIONS (6)
  - LOSS OF CONSCIOUSNESS [None]
  - BLOOD PRESSURE INCREASED [None]
  - HAEMORRHAGE [None]
  - HEAD INJURY [None]
  - PAIN [None]
  - GASTROINTESTINAL ULCER HAEMORRHAGE [None]
